FAERS Safety Report 5105149-6 (Version None)
Quarter: 2006Q3

REPORT INFORMATION
  Report Type: 
  Country: None (occurrence: None)
  Receive Date: 20060914
  Receipt Date: 20060620
  Transmission Date: 20061208
  Serious: Yes (Hospitalization, Disabling, Other)
  Sender: FDA-Public Use
  Company Number: US-MERCK-0606USA03583

PATIENT
  Age: 57 Year
  Sex: Male

DRUGS (3)
  1. FOSAMAX [Suspect]
     Route: 048
     Dates: start: 20040101
  2. CALCIUM (UNSPECIFIED) [Concomitant]
     Route: 065
  3. CORTICOSTEROIDS (UNSPECIFIED) [Concomitant]
     Route: 065

REACTIONS (3)
  - FALL [None]
  - FEMUR FRACTURE [None]
  - IMPAIRED HEALING [None]
